FAERS Safety Report 6773578-0 (Version None)
Quarter: 2010Q2

REPORT INFORMATION
  Report Type: 
  Country: None (occurrence: None)
  Receive Date: 20100614
  Receipt Date: 20100607
  Transmission Date: 20101027
  Serious: Yes (Hospitalization, Other)
  Sender: FDA-Public Use
  Company Number: 2010SP031576

PATIENT
  Age: 51 Year
  Sex: Female

DRUGS (8)
  1. MIRTAZAPINE [Suspect]
     Indication: DEPRESSION
     Dosage: 15 MG;QD;PO, 30 MG;QD;PO, 45 MG;QD;PO, 30 MG;QD;PO,  15 MG;QD;PO
     Route: 048
     Dates: start: 20091102, end: 20091105
  2. MIRTAZAPINE [Suspect]
     Indication: DEPRESSION
     Dosage: 15 MG;QD;PO, 30 MG;QD;PO, 45 MG;QD;PO, 30 MG;QD;PO,  15 MG;QD;PO
     Route: 048
     Dates: start: 20091106, end: 20091108
  3. MIRTAZAPINE [Suspect]
     Indication: DEPRESSION
     Dosage: 15 MG;QD;PO, 30 MG;QD;PO, 45 MG;QD;PO, 30 MG;QD;PO,  15 MG;QD;PO
     Route: 048
     Dates: start: 20091109, end: 20091228
  4. MIRTAZAPINE [Suspect]
     Indication: DEPRESSION
     Dosage: 15 MG;QD;PO, 30 MG;QD;PO, 45 MG;QD;PO, 30 MG;QD;PO,  15 MG;QD;PO
     Route: 048
     Dates: start: 20091229, end: 20091229
  5. MIRTAZAPINE [Suspect]
     Indication: DEPRESSION
     Dosage: 15 MG;QD;PO, 30 MG;QD;PO, 45 MG;QD;PO, 30 MG;QD;PO,  15 MG;QD;PO
     Route: 048
     Dates: start: 20091230, end: 20100101
  6. PANTOZOL (CON.) [Concomitant]
  7. DELIX (CON.) [Concomitant]
  8. L-THYROXIN (CON.) [Concomitant]

REACTIONS (2)
  - PAIN IN EXTREMITY [None]
  - RESTLESS LEGS SYNDROME [None]
